FAERS Safety Report 14149102 (Version 4)
Quarter: 2017Q4

REPORT INFORMATION
  Report Type: Report from Study
  Country: IT (occurrence: IT)
  Receive Date: 20171101
  Receipt Date: 20171219
  Transmission Date: 20180321
  Serious: Yes (Hospitalization)
  Sender: FDA-Public Use
  Company Number: IT-ROCHE-2013830

PATIENT
  Age: 68 Year
  Sex: Male
  Weight: 71 kg

DRUGS (3)
  1. ATEZOLIZUMAB. [Suspect]
     Active Substance: ATEZOLIZUMAB
     Dosage: MOST RECENT DOSE PRIOR TO SAE WAS ON THE SAME DAY
     Route: 042
     Dates: start: 20171030
  2. MORFINE [Concomitant]
     Active Substance: MORPHINE
     Indication: ABDOMINAL PAIN
     Route: 048
     Dates: start: 20171124, end: 20171128
  3. ATEZOLIZUMAB. [Suspect]
     Active Substance: ATEZOLIZUMAB
     Indication: MALIGNANT URINARY TRACT NEOPLASM
     Dosage: MOST RECENT DOSE PRIOR TO SAE WAS ON THE SAME DAY
     Route: 042
     Dates: start: 20170928

REACTIONS (1)
  - Urinary retention [Recovered/Resolved]

NARRATIVE: CASE EVENT DATE: 20171011
